FAERS Safety Report 7164595-X (Version None)
Quarter: 2010Q4

REPORT INFORMATION
  Report Type: 
  Country: None (occurrence: None)
  Receive Date: 20101215
  Receipt Date: 20101210
  Transmission Date: 20110411
  Serious: Yes (Hospitalization, Other)
  Sender: FDA-Public Use
  Company Number: US-CEPHALON-2010006398

PATIENT
  Sex: Female
  Weight: 58 kg

DRUGS (7)
  1. TREANDA [Suspect]
     Indication: B-CELL LYMPHOMA
     Route: 042
     Dates: start: 20100603
  2. RITUXIMAB [Suspect]
     Indication: B-CELL LYMPHOMA
     Route: 042
     Dates: start: 20100603
  3. MITOXANTRONE [Suspect]
     Indication: B-CELL LYMPHOMA
     Route: 042
     Dates: start: 20100604
  4. NEUPOGEN [Concomitant]
  5. PRAVASTATIN [Concomitant]
  6. ACTONEL [Concomitant]
  7. SYNTHROID [Concomitant]

REACTIONS (6)
  - ANKLE FRACTURE [None]
  - CLOSTRIDIUM DIFFICILE COLITIS [None]
  - FALL [None]
  - FEBRILE NEUTROPENIA [None]
  - PANCYTOPENIA [None]
  - PRODUCTIVE COUGH [None]
